FAERS Safety Report 6085366-1 (Version None)
Quarter: 2009Q1

REPORT INFORMATION
  Report Type: 
  Country: None (occurrence: None)
  Receive Date: 20090220
  Receipt Date: 20090210
  Transmission Date: 20090719
  Serious: Yes (Death)
  Sender: FDA-Public Use
  Company Number: IE-WYE-G02995009

PATIENT
  Age: 60 Year
  Sex: Male

DRUGS (1)
  1. RELISTOR [Suspect]
     Dosage: UNKNOWN

REACTIONS (1)
  - DEATH [None]
